FAERS Safety Report 26046039 (Version 2)
Quarter: 2025Q4

REPORT INFORMATION
  Report Type: Spontaneous
  Country: TH (occurrence: TH)
  Receive Date: 20251114
  Receipt Date: 20251204
  Transmission Date: 20260118
  Serious: Yes (Hospitalization, Other)
  Sender: BRISTOL-MYERS SQUIBB COMPANY
  Company Number: TH-IPSEN Group, Research and Development-2024-10528

PATIENT
  Age: 82 Year
  Sex: Male

DRUGS (14)
  1. OPDIVO [Suspect]
     Active Substance: NIVOLUMAB
     Indication: Renal cell carcinoma
     Dosage: 240 MG, Q2WEEKS
     Route: 042
     Dates: start: 20240514
  2. OPDIVO [Suspect]
     Active Substance: NIVOLUMAB
     Dosage: 240 MG EVERY 2 WEEKS
     Route: 042
  3. OPDIVO [Suspect]
     Active Substance: NIVOLUMAB
     Dosage: 180 MG EVERY TWO WEEKS
     Dates: start: 20250714
  4. OPDIVO [Suspect]
     Active Substance: NIVOLUMAB
     Dosage: 180 MG EVERY TWO WEEKS
     Route: 042
  5. CABOMETYX [Suspect]
     Active Substance: CABOZANTINIB S-MALATE
     Indication: Renal cell carcinoma
     Dosage: 40 MG, QD
     Route: 048
     Dates: start: 20240514
  6. CABOMETYX [Suspect]
     Active Substance: CABOZANTINIB S-MALATE
     Dosage: 40 MG EVERY OTHER DAY
     Route: 048
     Dates: start: 20240718
  7. CABOMETYX [Suspect]
     Active Substance: CABOZANTINIB S-MALATE
     Dosage: 40 MG FOR TWO CONSECUTIVE DAYS FOLLOWED BY A DAY OFF
     Route: 048
     Dates: start: 20241001
  8. CABOMETYX [Suspect]
     Active Substance: CABOZANTINIB S-MALATE
     Dosage: 40 MG EVERY OTHER DAY
     Route: 048
  9. CABOMETYX [Suspect]
     Active Substance: CABOZANTINIB S-MALATE
     Dosage: 40 MG EVERY THREE DAYS
     Route: 048
     Dates: start: 20250127
  10. CABOMETYX [Suspect]
     Active Substance: CABOZANTINIB S-MALATE
     Dosage: 40 MG EVERY OTHER DAY
     Route: 048
     Dates: start: 20250417, end: 20250424
  11. CABOMETYX [Suspect]
     Active Substance: CABOZANTINIB S-MALATE
     Dosage: 40MG TWO CONSECUTIVE DAYS WITH A DAY OFF
     Route: 048
  12. CABOMETYX [Suspect]
     Active Substance: CABOZANTINIB S-MALATE
     Dosage: 40 MG EVERY OTHER DAY
     Route: 048
     Dates: start: 20250531, end: 20250627
  13. CABOMETYX [Suspect]
     Active Substance: CABOZANTINIB S-MALATE
     Dosage: 40MG EVERY OTHER DAY
     Route: 048
     Dates: start: 20250714
  14. CABOMETYX [Suspect]
     Active Substance: CABOZANTINIB S-MALATE
     Dosage: FIVE DAYS A WEEK (EXCEPT WEDNESDAY AND SATURDAY)
     Route: 048
     Dates: start: 20251103

REACTIONS (9)
  - Influenza [Unknown]
  - Pleural effusion [Unknown]
  - Chest wall tumour [Unknown]
  - Pneumonia [Unknown]
  - Metastases to bone [Unknown]
  - Diarrhoea [Recovering/Resolving]
  - Hypertension [Recovering/Resolving]
  - Lung disorder [Recovering/Resolving]
  - Prescribed underdose [Unknown]

NARRATIVE: CASE EVENT DATE: 20250401
